FAERS Safety Report 19429084 (Version 1)
Quarter: 2021Q2

REPORT INFORMATION
  Report Type: Spontaneous
  Country: US (occurrence: US)
  Receive Date: 20210617
  Receipt Date: 20210617
  Transmission Date: 20210717
  Serious: Yes (Hospitalization)
  Sender: FDA-Public Use
  Company Number: None

PATIENT
  Age: 35 Year
  Sex: Male

DRUGS (1)
  1. GLATIRAMER PFS 40MG/ML [Suspect]
     Active Substance: GLATIRAMER ACETATE
     Dosage: OTHER
     Route: 058
     Dates: start: 202105, end: 202106

REACTIONS (6)
  - Musculoskeletal stiffness [None]
  - Injection site warmth [None]
  - Injection site erythema [None]
  - Pyrexia [None]
  - Injection site vesicles [None]
  - Erythema [None]

NARRATIVE: CASE EVENT DATE: 20210531
